FAERS Safety Report 5505630-1 (Version None)
Quarter: 2007Q4

REPORT INFORMATION
  Report Type: 
  Country: None (occurrence: None)
  Receive Date: 20071102
  Receipt Date: 20071023
  Transmission Date: 20080405
  Serious: Yes (Other)
  Sender: FDA-Public Use
  Company Number: US-PFIZER INC-2007058921

PATIENT
  Sex: Female
  Weight: 60.5 kg

DRUGS (15)
  1. XALATAN [Suspect]
     Indication: OPEN ANGLE GLAUCOMA
     Dates: start: 20020305, end: 20070713
  2. WARFARIN SODIUM [Concomitant]
  3. FUROSEMIDE [Concomitant]
  4. CLONAZEPAM [Concomitant]
  5. CLARITIN [Concomitant]
  6. ALL OTHER THERAPEUTIC PRODUCTS [Concomitant]
  7. ALL OTHER THERAPEUTIC PRODUCTS [Concomitant]
  8. ZETIA [Concomitant]
  9. NEXIUM [Concomitant]
  10. MINERAL SUPPLEMENTS [Concomitant]
  11. SENNA [Concomitant]
  12. ALLEGRA [Concomitant]
  13. ALL OTHER THERAPEUTIC PRODUCTS [Concomitant]
  14. PERCOCET [Concomitant]
  15. METOPROLOL [Concomitant]

REACTIONS (11)
  - BLOOD TEST ABNORMAL [None]
  - CONJUNCTIVITIS BACTERIAL [None]
  - DRY EYE [None]
  - EYE IRRITATION [None]
  - EYELID OEDEMA [None]
  - FALL [None]
  - HIP FRACTURE [None]
  - LACRIMATION INCREASED [None]
  - LOWER LIMB FRACTURE [None]
  - OCULAR HYPERAEMIA [None]
  - VISUAL DISTURBANCE [None]
